FAERS Safety Report 13922471 (Version 1)
Quarter: 2017Q3

REPORT INFORMATION
  Report Type: Other
  Country: US (occurrence: US)
  Receive Date: 20170830
  Receipt Date: 20170830
  Transmission Date: 20171127
  Serious: Yes (Death)
  Sender: FDA-Public Use
  Company Number: US-OSMOTICA_PHARMACEUTICAL_US_LLC-POI0573201700046

PATIENT
  Age: 54 Year
  Sex: Male
  Weight: 128 kg

DRUGS (6)
  1. LORAZEPAM. [Suspect]
     Active Substance: LORAZEPAM
     Dates: end: 2014
  2. 4-METHOXYPHENCYCLIDINE [Suspect]
     Active Substance: 4-METHOXYPHENCYCLIDINE
     Dates: end: 2014
  3. VENLAFAXINE [Suspect]
     Active Substance: VENLAFAXINE HYDROCHLORIDE
     Dates: end: 2014
  4. 4-HYDROXY-N-METHYL-N-ETHYLTRYPTAMINE [Suspect]
     Active Substance: 4-HO-MET
     Dates: end: 2014
  5. OLANZAPINE. [Suspect]
     Active Substance: OLANZAPINE
     Dates: end: 2014
  6. HYDROXYZINE [Suspect]
     Active Substance: HYDROXYZINE HYDROCHLORIDE
     Dates: end: 2014

REACTIONS (5)
  - Pulmonary congestion [Fatal]
  - Toxicity to various agents [Fatal]
  - Hepatic steatosis [Fatal]
  - Cardiomegaly [Fatal]
  - Pulmonary oedema [Fatal]

NARRATIVE: CASE EVENT DATE: 2014
